FAERS Safety Report 17441055 (Version 1)
Quarter: 2020Q1

REPORT INFORMATION
  Report Type: Spontaneous
  Country: CN (occurrence: CN)
  Receive Date: 20200220
  Receipt Date: 20200220
  Transmission Date: 20200409
  Serious: Yes (Hospitalization)
  Sender: FDA-Public Use
  Company Number: CN-ASTRAZENECA-2020SE23666

PATIENT
  Age: 52 Year
  Sex: Female
  Weight: 50 kg

DRUGS (2)
  1. IPRATROPIUM BROMIDE. [Concomitant]
     Active Substance: IPRATROPIUM BROMIDE
     Indication: PNEUMONIA
     Route: 055
     Dates: start: 20200131, end: 20200202
  2. BUDESONIDE. [Suspect]
     Active Substance: BUDESONIDE
     Indication: PNEUMONIA
     Route: 055
     Dates: start: 20200131, end: 20200202

REACTIONS (2)
  - Palatal ulcer [Recovering/Resolving]
  - Lip ulceration [Recovering/Resolving]

NARRATIVE: CASE EVENT DATE: 20200201
